FAERS Safety Report 20564081 (Version 3)
Quarter: 2022Q3

REPORT INFORMATION
  Report Type: Report from Study
  Country: US (occurrence: US)
  Receive Date: 20220308
  Receipt Date: 20220718
  Transmission Date: 20221027
  Serious: Yes (Hospitalization, Other)
  Sender: FDA-Public Use
  Company Number: US-ABBVIE-22K-163-4267698-00

PATIENT
  Sex: Male
  Weight: 73.094 kg

DRUGS (3)
  1. IMBRUVICA [Suspect]
     Active Substance: IBRUTINIB
     Indication: Chronic lymphocytic leukaemia
     Route: 048
     Dates: start: 2021
  2. IMBRUVICA [Suspect]
     Active Substance: IBRUTINIB
     Route: 048
     Dates: start: 202106, end: 20220225
  3. IMBRUVICA [Suspect]
     Active Substance: IBRUTINIB
     Route: 048
     Dates: end: 20220323

REACTIONS (18)
  - Loss of consciousness [Recovered/Resolved]
  - Loss of consciousness [Unknown]
  - Concussion [Unknown]
  - Skin cancer [Recovered/Resolved]
  - Skin cancer [Not Recovered/Not Resolved]
  - White blood cell count abnormal [Unknown]
  - Blood viscosity decreased [Unknown]
  - Rib fracture [Unknown]
  - Gait inability [Unknown]
  - Ageusia [Unknown]
  - Intentional product misuse [Unknown]
  - Dislocation of vertebra [Unknown]
  - Haemorrhage [Unknown]
  - Fall [Unknown]
  - Decreased appetite [Not Recovered/Not Resolved]
  - Weight decreased [Recovering/Resolving]
  - COVID-19 [Recovered/Resolved]
  - Contusion [Recovered/Resolved]

NARRATIVE: CASE EVENT DATE: 20210101
